FAERS Safety Report 12933837 (Version 20)
Quarter: 2018Q3

REPORT INFORMATION
  Report Type: Report from Study
  Country: None (occurrence: AT)
  Receive Date: 20161111
  Receipt Date: 20180827
  Transmission Date: 20181010
  Serious: Yes (Hospitalization)
  Sender: FDA-Public Use
  Company Number: AT-ABBVIE-16P-009-1773385-00

PATIENT
  Age: 74 Year
  Sex: Female
  Weight: 59 kg

DRUGS (37)
  1. VENETOCLAX. [Suspect]
     Active Substance: VENETOCLAX
     Indication: B-CELL LYMPHOMA
     Dosage: DATE OF MOST RECENT DOSE (800MG) PRIOR TO FEBRILE NEUTROPENIA AND CRP INCREASED 02 NOV 16
     Route: 048
     Dates: start: 20161028, end: 20161124
  2. VENETOCLAX. [Suspect]
     Active Substance: VENETOCLAX
     Dosage: RECENT DOSE (600MG) PRIOR TO AGRANULOCYTOSIS, WORSENING ANEMIA AND NEUTROPENIA 24 NOV 16
     Route: 048
  3. RITUXIMAB. [Suspect]
     Active Substance: RITUXIMAB
     Dosage: MOST RECENT DOSE (650MG) PRIOR TO WORSENING ANEMIA AND NEUTROPENIA 12 JAN 17
     Route: 042
  4. DOXORUBICIN [Suspect]
     Active Substance: DOXORUBICIN
     Dosage: RECENT DOSE (85MG) PRIOR TO WORSENING ANEMIA AND NEUTROPENIA WAS 12 JAN 17
     Route: 042
  5. VINCRISTINE [Suspect]
     Active Substance: VINCRISTINE
     Indication: B-CELL LYMPHOMA
     Dosage: MOST RECENT DOSE (2MG) PRIOR TO CRP INCREASE, INFECTION AND FN WAS 25 OCT 16
     Route: 042
     Dates: start: 20161025
  6. THROMBO [Concomitant]
     Indication: THROMBOSIS PROPHYLAXIS
  7. TAVANIC [Concomitant]
     Active Substance: LEVOFLOXACIN
     Indication: INFECTION PROPHYLAXIS
     Dates: start: 20161119, end: 20170309
  8. VENETOCLAX. [Suspect]
     Active Substance: VENETOCLAX
     Dosage: DATE OF MOST RECENT DOSE (800MG) PRIOR TO INFECTION 03 NOV 16
     Route: 048
  9. CYCLOPHOSPHAMIDE. [Suspect]
     Active Substance: CYCLOPHOSPHAMIDE
     Dosage: DATE OF MOST RECENT DOSE PRIOR TO AGRANULOCYTOSIS (13560 MG) 16 NOV 2016
     Route: 042
  10. VINCRISTINE [Suspect]
     Active Substance: VINCRISTINE
     Dosage: MOST RECENT DOSE  PRIOR TO NEUTROPENIA AND WORSENING ANEMIA WAS 16 NOV 16
     Route: 042
  11. HYDAL [Concomitant]
     Active Substance: HYDROMORPHONE HYDROCHLORIDE
     Indication: PAIN
  12. RATIOGRASTIM [Concomitant]
     Active Substance: FILGRASTIM
     Dates: start: 20161102, end: 20161107
  13. CYCLOPHOSPHAMIDE. [Suspect]
     Active Substance: CYCLOPHOSPHAMIDE
     Dosage: DATE OF MOST RECENT DOSE PRIOR TO NEUTROPENIA AND WORSENING OF ANEMIA(1300 MG) 16 NOV 2016
     Route: 042
  14. JANUVIA [Concomitant]
     Active Substance: SITAGLIPTIN PHOSPHATE
     Indication: TYPE 2 DIABETES MELLITUS
  15. SERTRALINE [Concomitant]
     Active Substance: SERTRALINE HYDROCHLORIDE
     Indication: DEPRESSION
     Dates: start: 201612
  16. MYCOSTATIN [Concomitant]
     Active Substance: NYSTATIN
     Indication: INTERTRIGO
     Dates: start: 20161124, end: 201612
  17. RATIOGRASTIM [Concomitant]
     Active Substance: FILGRASTIM
     Indication: NEUTROPENIA
     Dates: start: 20161029, end: 20161101
  18. PERFALGAN [Concomitant]
     Active Substance: ACETAMINOPHEN
     Indication: PYREXIA
     Dates: start: 20161025, end: 20161025
  19. VINCRISTINE [Suspect]
     Active Substance: VINCRISTINE
     Dosage: MOST RECENT DOSE (2MG) PRIOR TO AGRANULOCYTOSIS WAS 16 NOV 16
     Route: 042
  20. OPTINEM [Concomitant]
     Active Substance: MEROPENEM
     Indication: FEBRILE NEUTROPENIA
     Dates: start: 20161029, end: 20161107
  21. ENALAPRIL [Concomitant]
     Active Substance: ENALAPRIL
     Indication: HYPERTENSION
  22. RITUXIMAB. [Suspect]
     Active Substance: RITUXIMAB
     Dosage: MOST RECENT DOSE (650MG) PRIOR TO AGRANULCYTOSIS  16 NOV 16
     Route: 042
  23. DOXORUBICIN [Suspect]
     Active Substance: DOXORUBICIN
     Indication: B-CELL LYMPHOMA
     Dosage: RECENT DOSE (90MG) PRIOR TO CRP INCREASE, INFECTION AND FN WAS 25 OCT 16
     Route: 042
     Dates: start: 20161025
  24. DOXORUBICIN [Suspect]
     Active Substance: DOXORUBICIN
     Dosage: RECENT DOSE (90MG) PRIOR TO AGRANULOCYTOSIS  WAS 16 NOV 16
     Route: 042
  25. PREDNISONE. [Suspect]
     Active Substance: PREDNISONE
     Dosage: DATE OF MOST RECENT DOSE (100MG) PRIOR TO NEUTROPENIA AND WORSENING ANEMIA WAS 16 JAN 17
     Route: 048
  26. CYCLOPHOSPHAMIDE. [Suspect]
     Active Substance: CYCLOPHOSPHAMIDE
     Indication: B-CELL LYMPHOMA
     Dosage: DOSES PRIOR TO CRP INCREASED, INFECTION, FEBRILE NEUTROPENIA (1350 MG)  25 OCT 2016
     Route: 042
     Dates: start: 20161025
  27. PREDNISONE. [Suspect]
     Active Substance: PREDNISONE
     Dosage: DATE OF MOST RECENT DOSE (100MG) PRIOR TO AGRANULOCYTOSIS WAS 20 NOV 16
     Route: 048
  28. OPTINEM [Concomitant]
     Active Substance: MEROPENEM
     Indication: INFECTION
  29. CRESTOR [Concomitant]
     Active Substance: ROSUVASTATIN CALCIUM
     Indication: HYPERCHOLESTEROLAEMIA
  30. TRITTICO [Concomitant]
     Active Substance: TRAZODONE HYDROCHLORIDE
     Indication: DEPRESSION
  31. NEXIUM [Concomitant]
     Active Substance: ESOMEPRAZOLE MAGNESIUM
     Indication: PRODUCT USED FOR UNKNOWN INDICATION
  32. MOLAXOLE [Concomitant]
     Active Substance: POLYETHYLENE GLYCOL 3350\POTASSIUM CHLORIDE\SODIUM BICARBONATE\SODIUM CHLORIDE
     Indication: CONSTIPATION
  33. UNASYN [Concomitant]
     Active Substance: AMPICILLIN SODIUM\SULBACTAM SODIUM
     Indication: PYREXIA
     Route: 042
     Dates: start: 20161024, end: 20161028
  34. ZINC OXIDE. [Concomitant]
     Active Substance: ZINC OXIDE
     Indication: INTERTRIGO
     Dates: start: 20161124, end: 201612
  35. RITUXIMAB. [Suspect]
     Active Substance: RITUXIMAB
     Indication: B-CELL LYMPHOMA
     Dosage: MOST RECENT DOSE (680MG) PRIOR TO CRP INCREASED, INFECTION AND FN 25 OCT 16
     Route: 042
     Dates: start: 20161025
  36. PREDNISONE. [Suspect]
     Active Substance: PREDNISONE
     Indication: B-CELL LYMPHOMA
     Dosage: DATE OF MOST RECENT DOSE (100MG) PRIOR TO CRP INCREASE, INFECTION AND FN WAS 29 OCT 16
     Route: 048
     Dates: start: 20161025
  37. TRAVOCORT [Concomitant]
     Indication: INTERTRIGO
     Dates: start: 20161114, end: 20161123

REACTIONS (6)
  - Anaemia [Recovered/Resolved]
  - Infection [Recovered/Resolved]
  - Neutropenia [Recovered/Resolved]
  - Agranulocytosis [Recovered/Resolved]
  - Infection [Recovered/Resolved]
  - Febrile neutropenia [Recovered/Resolved]

NARRATIVE: CASE EVENT DATE: 20161102
